FAERS Safety Report 7987752-9 (Version None)
Quarter: 2011Q4

REPORT INFORMATION
  Report Type: 
  Country: None (occurrence: None)
  Receive Date: 20111216
  Receipt Date: 20101102
  Transmission Date: 20120403
  Serious: No
  Sender: FDA-Public Use
  Company Number: US-BRISTOL-MYERS SQUIBB COMPANY-15364037

PATIENT
  Age: 31 Year
  Sex: Female

DRUGS (1)
  1. ABILIFY [Suspect]
     Dosage: RESTARTED RECEIVED FOR 1 TO 2 MONTHS

REACTIONS (2)
  - INFLUENZA LIKE ILLNESS [None]
  - PAIN [None]
